FAERS Safety Report 5760419-3 (Version None)
Quarter: 2008Q2

REPORT INFORMATION
  Report Type: 
  Country: None (occurrence: None)
  Receive Date: 20080605
  Receipt Date: 20080528
  Transmission Date: 20081010
  Serious: Yes (Life-Threatening, Other)
  Sender: FDA-Public Use
  Company Number: GB-PFIZER INC-2008046424

PATIENT
  Age: 69 Year
  Sex: Male
  Weight: 68 kg

DRUGS (8)
  1. AMLODIPINE [Suspect]
     Indication: HYPERTENSION
     Route: 048
  2. CETIRIZINE HCL [Suspect]
     Indication: PRURITUS
     Route: 048
  3. AMBISOME [Suspect]
     Indication: SYSTEMIC CANDIDA
     Route: 042
     Dates: start: 20060422, end: 20060501
  4. AMBISOME [Suspect]
     Route: 042
     Dates: start: 20060501, end: 20060602
  5. CALCICHEW [Concomitant]
     Route: 048
  6. DARBEPOETIN ALFA [Concomitant]
     Indication: BLOOD BICARBONATE DECREASED
     Route: 058
  7. OMEPRAZOLE [Concomitant]
     Indication: PROPHYLAXIS
  8. SODIUM BICARBONATE [Concomitant]
     Indication: BLOOD BICARBONATE DECREASED
     Route: 048

REACTIONS (5)
  - ARRHYTHMIA SUPRAVENTRICULAR [None]
  - ATRIAL FLUTTER [None]
  - BLOOD MAGNESIUM DECREASED [None]
  - BLOOD PRESSURE DECREASED [None]
  - HAEMOGLOBIN DECREASED [None]
